FAERS Safety Report 7585047-9 (Version None)
Quarter: 2011Q2

REPORT INFORMATION
  Report Type: 
  Country: None (occurrence: None)
  Receive Date: 20110630
  Receipt Date: 20110628
  Transmission Date: 20111010
  Serious: Yes (Congenital Anomaly)
  Sender: FDA-Public Use
  Company Number: US-GILEAD-2011-0041164

PATIENT
  Sex: Male
  Weight: 2.255 kg

DRUGS (6)
  1. REYATAZ [Concomitant]
     Route: 064
     Dates: start: 20090806, end: 20101215
  2. NORVIR [Concomitant]
     Route: 064
     Dates: start: 20090806, end: 20101215
  3. ALUVIA [Concomitant]
     Route: 064
     Dates: start: 20101216
  4. RETROVIR [Concomitant]
     Route: 064
     Dates: start: 20110606, end: 20110606
  5. COMBIVIR [Concomitant]
     Route: 064
     Dates: start: 20101216
  6. TRUVADA [Suspect]
     Route: 064
     Dates: start: 20090806, end: 20101215

REACTIONS (1)
  - CONGENITAL CENTRAL NERVOUS SYSTEM ANOMALY [None]
